FAERS Safety Report 8159451-4 (Version None)
Quarter: 2012Q1

REPORT INFORMATION
  Report Type: 
  Country: None (occurrence: None)
  Receive Date: 20120223
  Receipt Date: 20120214
  Transmission Date: 20120608
  Serious: Yes (Hospitalization, Disabling)
  Sender: FDA-Public Use
  Company Number: GB-TEVA-310578ISR

PATIENT
  Age: 79 Year
  Sex: Male

DRUGS (6)
  1. ZOLPIDEM [Concomitant]
  2. TRAMADOL HCL [Concomitant]
  3. XARELTO [Suspect]
     Indication: THROMBOSIS PROPHYLAXIS
     Route: 048
     Dates: start: 20110726, end: 20110830
  4. LERCANIDIPINE [Suspect]
     Indication: HYPERTENSION
     Route: 048
     Dates: start: 20110628, end: 20110907
  5. CLARITHROMYCIN [Suspect]
     Indication: UPPER RESPIRATORY TRACT INFECTION
     Route: 048
     Dates: start: 20110825, end: 20110901
  6. ACETAMINOPHEN [Concomitant]

REACTIONS (5)
  - OEDEMA PERIPHERAL [None]
  - PLEURAL EFFUSION [None]
  - PERICARDIAL EFFUSION [None]
  - LIVER FUNCTION TEST ABNORMAL [None]
  - DYSPNOEA [None]
